FAERS Safety Report 4397530-8 (Version None)
Quarter: 2004Q2

REPORT INFORMATION
  Report Type: 
  Country: None (occurrence: None)
  Receive Date: 20040621
  Receipt Date: 20040121
  Transmission Date: 20050107
  Serious: Yes (Death)
  Sender: FDA-Public Use
  Company Number: USA-2004-0012544

PATIENT
  Age: 42 Year
  Sex: Male

DRUGS (10)
  1. OXYCONTIN [Suspect]
     Indication: PAIN
     Dosage: 40 MG, UNK, UNKNOWN
     Route: 065
  2. HYDROCODONE BITARTRATE [Suspect]
     Dosage: UNK, UNK, UNK, UNKNOWN
     Route: 065
  3. CANNABIS (CANNABIS) [Suspect]
     Dosage: UNK UNK, UNK, UNKNOWN
     Route: 065
  4. PROPOXYPHENE HCL [Suspect]
     Dosage: UNK UNK, UNK, UNKNOWN
     Route: 065
  5. ALPRAZOLAM [Suspect]
     Dosage: UNK UNK, UNK, UNKNOWN
     Route: 065
  6. OXAZEPAM [Suspect]
     Dosage: UNK UNK, UNK, UNKNOWN
     Route: 065
  7. TEMAZEPAM [Suspect]
     Dosage: UNK UNK, UNK, UNKNOWN
     Route: 065
  8. ACETAMINOPHEN [Suspect]
     Dosage: UNK UNK, UNK, UNKNOWN
     Route: 065
  9. LIDOCAINE [Suspect]
     Dosage: UNK UNK, UNK, UNKNOWN
     Route: 065
  10. MEPERIDINE HCL [Suspect]
     Dosage: UNK UNK, UNK, UNKNOWN
     Route: 065

REACTIONS (2)
  - ACCIDENTAL OVERDOSE [None]
  - MULTIPLE DRUG OVERDOSE [None]
